FAERS Safety Report 17651591 (Version 1)
Quarter: 2020Q2

REPORT INFORMATION
  Report Type: Spontaneous
  Country: US (occurrence: US)
  Receive Date: 20200409
  Receipt Date: 20200409
  Transmission Date: 20200713
  Serious: No
  Sender: FDA-Public Use
  Company Number: None

PATIENT
  Age: 57 Year
  Sex: Male
  Weight: 100.75 kg

DRUGS (22)
  1. LEVITRA 2.5MG, ORAL [Concomitant]
  2. IMATINIB 400MG, ORAL [Concomitant]
  3. MIRALAX, ORAL [Concomitant]
  4. ATORVASTATIN 20MG, ORAL [Concomitant]
  5. DOXYCYCLINE 100MG, ORAL [Concomitant]
  6. MULTIVITAMIN, ORAL [Concomitant]
  7. AMLODIPINE 10MG, ORAL [Concomitant]
  8. TRAZODONE 50MG, ORAL [Concomitant]
  9. GLUCOSAMINE CHONDRIOTIN COMPLEX [Concomitant]
  10. FLUOXETINE, ORAL [Concomitant]
  11. SPRYCEL [Suspect]
     Active Substance: DASATINIB
     Indication: CHRONIC MYELOID LEUKAEMIA
     Route: 048
     Dates: start: 20191224, end: 20200409
  12. VESICARE 5MG, ORAL [Concomitant]
  13. GABAPENTIN 900MG, ORAL [Concomitant]
  14. LIDOCAINE 5%, EXTERNAL [Concomitant]
  15. LISINOPRIL 20MG, ORAL [Concomitant]
  16. PROCHLORPERAZINE 10MG, ORAL [Concomitant]
  17. ACAMPROSATE CALCIUM 333MG, ORAL [Concomitant]
  18. BACLOFEN 10MG, ORAL [Concomitant]
  19. LYRICA 25MG, ORAL [Concomitant]
  20. MYBETRIQ 25MG, ORAL [Concomitant]
  21. TIZANIDINE 2MG, ORAL [Concomitant]
  22. ONDANSETRON 4MG, ORAL [Concomitant]

REACTIONS (1)
  - Death [None]

NARRATIVE: CASE EVENT DATE: 20200409
